FAERS Safety Report 5400543-8 (Version None)
Quarter: 2007Q3

REPORT INFORMATION
  Report Type: 
  Country: None (occurrence: None)
  Receive Date: 20070730
  Receipt Date: 20070404
  Transmission Date: 20080115
  Serious: Yes (Death)
  Sender: FDA-Public Use
  Company Number: JP-AVENTIS-200710894JP

PATIENT

DRUGS (1)
  1. LASIX [Suspect]

REACTIONS (2)
  - DEATH [None]
  - DIZZINESS [None]
